FAERS Safety Report 5623397-3 (Version None)
Quarter: 2008Q1

REPORT INFORMATION
  Report Type: 
  Country: None (occurrence: None)
  Receive Date: 20080212
  Receipt Date: 20080131
  Transmission Date: 20080703
  Serious: Yes (Death, Hospitalization, Other)
  Sender: FDA-Public Use
  Company Number: GB-PFIZER INC-2007073246

PATIENT
  Age: 75 Year
  Sex: Male
  Weight: 85 kg

DRUGS (6)
  1. AMLODIPINE [Suspect]
     Dosage: FREQ:ONCE
     Route: 048
  2. SOTALOL [Suspect]
     Route: 048
  3. ASPIRIN [Suspect]
  4. PARACETAMOL [Suspect]
  5. DEXTROSE [Concomitant]
     Route: 042
  6. INSULIN [Concomitant]

REACTIONS (4)
  - ATRIOVENTRICULAR BLOCK FIRST DEGREE [None]
  - BRADYCARDIA [None]
  - HYPOTENSION [None]
  - OVERDOSE [None]
